FAERS Safety Report 5057681-1 (Version None)
Quarter: 2006Q3

REPORT INFORMATION
  Report Type: 
  Country: None (occurrence: None)
  Receive Date: 20060721
  Receipt Date: 20060117
  Transmission Date: 20061208
  Serious: No
  Sender: FDA-Public Use
  Company Number: US-GLAXOSMITHKLINE-A0589653A

PATIENT
  Age: 68 Year
  Sex: Female

DRUGS (17)
  1. AVANDIA [Suspect]
     Dosage: 2MG TWICE PER DAY
     Route: 048
     Dates: start: 20050401
  2. METFORMIN [Suspect]
     Dosage: 500MG TWICE PER DAY
     Route: 065
  3. INSULIN [Concomitant]
  4. LASIX [Concomitant]
  5. AMBIEN [Concomitant]
  6. CLARINEX [Concomitant]
  7. ZETIA [Concomitant]
  8. ALLOPURINOL [Concomitant]
  9. LIPITOR [Concomitant]
  10. ACIPHEX [Concomitant]
  11. FUROSEMIDE [Concomitant]
  12. TOPROL-XL [Concomitant]
  13. KLOR-CON [Concomitant]
  14. LEVOTHYROXINE SODIUM [Concomitant]
  15. PLAVIX [Concomitant]
  16. ALTACE [Concomitant]
  17. BYETTA [Concomitant]

REACTIONS (1)
  - BLOOD GLUCOSE INCREASED [None]
